FAERS Safety Report 8773405 (Version 1)
Quarter: 2012Q4

REPORT INFORMATION
  Report Type: 
  Country: US (occurrence: US)
  Receive Date: 20120907
  Receipt Date: 20120907
  Transmission Date: 20130627
  Serious: Yes (Other)
  Sender: FDA-Public Use
  Company Number: US-ROCHE-1065028

PATIENT
  Sex: Male
  Weight: 70.37 kg

DRUGS (4)
  1. ACCUTANE [Suspect]
     Indication: ACNE
     Route: 065
     Dates: start: 19991203, end: 20000406
  2. ACCUTANE [Suspect]
     Route: 065
     Dates: end: 20000506
  3. ACCUTANE [Suspect]
     Route: 065
     Dates: start: 20010619, end: 200110
  4. ACCUTANE [Suspect]
     Route: 065
     Dates: start: 20011219, end: 20020526

REACTIONS (4)
  - Colitis ulcerative [Unknown]
  - Inflammatory bowel disease [Unknown]
  - Emotional distress [Unknown]
  - Attention deficit/hyperactivity disorder [Unknown]
